FAERS Safety Report 7790914-7 (Version None)
Quarter: 2011Q3

REPORT INFORMATION
  Report Type: 
  Country: None (occurrence: None)
  Receive Date: 20110930
  Receipt Date: 20110928
  Transmission Date: 20111222
  Serious: Yes (Death)
  Sender: FDA-Public Use
  Company Number: TN-SANOFI-AVENTIS-2011SA063627

PATIENT
  Age: 70 Year
  Sex: Male

DRUGS (9)
  1. PLAVIX [Suspect]
     Route: 048
     Dates: start: 20080505, end: 20110804
  2. GLUCOPHAGE [Concomitant]
     Route: 048
     Dates: end: 20110804
  3. VESSEL DUE [Concomitant]
     Route: 048
     Dates: end: 20110804
  4. AMARYL [Concomitant]
     Route: 048
     Dates: end: 20110804
  5. CIPROFLOXACIN [Concomitant]
     Dates: end: 20110801
  6. PLAVIX [Suspect]
     Indication: CORONARY ARTERY DISEASE
     Route: 048
     Dates: start: 20080505, end: 20110804
  7. ASPIRIN [Concomitant]
     Route: 048
     Dates: end: 20110804
  8. PLAVIX [Suspect]
     Route: 048
     Dates: start: 20080505, end: 20110804
  9. ATORVASTATIN CALCIUM [Concomitant]
     Route: 048
     Dates: end: 20110804

REACTIONS (1)
  - GENERAL PHYSICAL HEALTH DETERIORATION [None]
